FAERS Safety Report 4764960-1 (Version None)
Quarter: 2005Q3

REPORT INFORMATION
  Report Type: 
  Country: None (occurrence: None)
  Receive Date: 20050907
  Receipt Date: 20050823
  Transmission Date: 20060218
  Serious: Yes (Hospitalization, Other)
  Sender: FDA-Public Use
  Company Number: 2005-0008047

PATIENT
  Age: 44 Year
  Sex: Male
  Weight: 60 kg

DRUGS (5)
  1. VIREAD [Suspect]
     Indication: HIV INFECTION
     Dosage: 300 MG, 1 IN 1 D, ORAL
     Route: 048
     Dates: start: 20040714, end: 20041120
  2. EPIVIR [Concomitant]
  3. REYATAZ [Concomitant]
  4. NORVIR [Concomitant]
  5. ALTACE [Concomitant]

REACTIONS (6)
  - CARDIAC FAILURE CONGESTIVE [None]
  - DEHYDRATION [None]
  - DRUG ADMINISTRATION ERROR [None]
  - GOUTY ARTHRITIS [None]
  - HYPERTENSIVE NEPHROPATHY [None]
  - RENAL FAILURE [None]
